FAERS Safety Report 5419213-5 (Version None)
Quarter: 2007Q3

REPORT INFORMATION
  Report Type: 
  Country: None (occurrence: None)
  Receive Date: 20070815
  Receipt Date: 20070731
  Transmission Date: 20080115
  Serious: Yes (Other)
  Sender: FDA-Public Use
  Company Number: 5725 / E2B_00010968

PATIENT
  Age: 79 Year
  Sex: Female

DRUGS (4)
  1. METFORMIN HCL [Suspect]
  2. LISINOPRIL [Concomitant]
  3. DIGOXIN [Concomitant]
  4. ASPIRIN [Concomitant]

REACTIONS (1)
  - BLOOD PRESSURE INCREASED [None]
